FAERS Safety Report 18010262 (Version 4)
Quarter: 2020Q3

REPORT INFORMATION
  Report Type: Spontaneous
  Country: US (occurrence: US)
  Receive Date: 20200710
  Receipt Date: 20200731
  Transmission Date: 20201103
  Serious: No
  Sender: FDA-Public Use
  Company Number: US-TRIS PHARMA, INC.-20US008991

PATIENT

DRUGS (5)
  1. CYCLOBENZAPRINE. [Concomitant]
     Active Substance: CYCLOBENZAPRINE
     Indication: MUSCLE SPASMS
     Dosage: 5 MILLIGRAM, QD
     Route: 048
     Dates: start: 20181115
  2. GABAPENTIN. [Concomitant]
     Active Substance: GABAPENTIN
     Indication: NEURALGIA
     Dosage: 300 MILLIGRAM
     Route: 048
     Dates: start: 20181115
  3. IBUPROFEN. [Concomitant]
     Active Substance: IBUPROFEN
     Indication: MUSCLE DISORDER
     Dosage: 800 MILLIGRAM
     Route: 048
     Dates: start: 202001
  4. HYDROCODONE + APAP [Suspect]
     Active Substance: ACETAMINOPHEN\HYDROCODONE BITARTRATE
     Dosage: 1 DOSAGE FORM, Q 12 HR
     Route: 048
     Dates: start: 20181115
  5. HYDROCODONE + APAP [Suspect]
     Active Substance: ACETAMINOPHEN\HYDROCODONE BITARTRATE
     Indication: PAIN
     Dosage: 1 DOSAGE FORM, Q 12 HR
     Route: 048

REACTIONS (3)
  - Drug screen positive [Recovered/Resolved]
  - Suspected product tampering [Unknown]
  - Drug screen positive [Unknown]

NARRATIVE: CASE EVENT DATE: 2020
